FAERS Safety Report 14876170 (Version 2)
Quarter: 2018Q2

REPORT INFORMATION
  Report Type: Report from Study
  Country: US (occurrence: US)
  Receive Date: 20180510
  Receipt Date: 20180514
  Transmission Date: 20180711
  Serious: Yes (Other)
  Sender: FDA-Public Use
  Company Number: US-SHIRE-US201816431

PATIENT
  Age: 65 Year
  Sex: Female

DRUGS (2)
  1. GATTEX [Suspect]
     Active Substance: TEDUGLUTIDE\WATER
     Indication: OFF LABEL USE
     Dosage: 5 MG, 1X/DAY:QD
     Route: 058
     Dates: start: 20180425, end: 20180501
  2. GATTEX [Suspect]
     Active Substance: TEDUGLUTIDE\WATER
     Indication: MALABSORPTION
     Dosage: 1.89 MG, 1X/DAY:QD
     Route: 058
     Dates: start: 20180323

REACTIONS (5)
  - Diarrhoea [Recovering/Resolving]
  - Crohn^s disease [Recovering/Resolving]
  - Abdominal distension [Recovering/Resolving]
  - Flatulence [Recovering/Resolving]
  - Off label use [Unknown]

NARRATIVE: CASE EVENT DATE: 20180420
